FAERS Safety Report 5846275-3 (Version None)
Quarter: 2008Q3

REPORT INFORMATION
  Report Type: 
  Country: None (occurrence: None)
  Receive Date: 20080815
  Receipt Date: 20080724
  Transmission Date: 20090109
  Serious: No
  Sender: FDA-Public Use
  Company Number: GB-PFIZER INC-2008062372

PATIENT
  Age: 20 Year
  Sex: Female

DRUGS (5)
  1. LATANOPROST [Suspect]
     Indication: GLAUCOMA
     Route: 047
  2. BEVACIZUMAB [Suspect]
     Route: 031
  3. BRIMONIDINE TARTRATE [Suspect]
     Indication: GLAUCOMA
     Route: 047
  4. TIMOLOL MALEATE [Suspect]
     Indication: GLAUCOMA
     Route: 047
  5. INSULIN [Concomitant]

REACTIONS (1)
  - NO ADVERSE EVENT [None]
